FAERS Safety Report 8310316-4 (Version None)
Quarter: 2012Q2

REPORT INFORMATION
  Report Type: 
  Country: None (occurrence: None)
  Receive Date: 20120425
  Receipt Date: 20120418
  Transmission Date: 20120825
  Serious: Yes (Hospitalization)
  Sender: FDA-Public Use
  Company Number: PHHY2012FR033319

PATIENT
  Sex: Male

DRUGS (4)
  1. LAMISIL [Suspect]
     Indication: ONYCHOMYCOSIS
     Dosage: 250 MG, QD
     Dates: start: 20120216, end: 20120309
  2. LEXOMIL [Concomitant]
     Dosage: 0.5 DF, QD
  3. AMITRIPTYLINE HCL [Concomitant]
     Dosage: 6 DRP, QD
  4. MIZOLLEN [Concomitant]
     Dosage: 10 MG, QD

REACTIONS (8)
  - TOXIC SKIN ERUPTION [None]
  - RASH MACULO-PAPULAR [None]
  - SKIN EXFOLIATION [None]
  - OEDEMA PERIPHERAL [None]
  - RASH ERYTHEMATOUS [None]
  - CYTOLYTIC HEPATITIS [None]
  - DRUG RASH WITH EOSINOPHILIA AND SYSTEMIC SYMPTOMS [None]
  - LEUKOCYTOSIS [None]
